FAERS Safety Report 6148205-6 (Version None)
Quarter: 2009Q2

REPORT INFORMATION
  Report Type: 
  Country: None (occurrence: None)
  Receive Date: 20090408
  Receipt Date: 20090403
  Transmission Date: 20091009
  Serious: Yes (Death, Hospitalization)
  Sender: FDA-Public Use
  Company Number: US-ROCHE-612952

PATIENT
  Sex: Male
  Weight: 91 kg

DRUGS (7)
  1. XELODA [Suspect]
     Indication: RECTAL CANCER STAGE I
     Route: 048
     Dates: start: 20080228, end: 20080404
  2. XELODA [Suspect]
     Dosage: STANDAR DOSE: 1000MG/M2=2000MG
     Route: 048
     Dates: start: 20080808, end: 20081001
  3. VYTORIN [Concomitant]
  4. METOPROLOL [Concomitant]
  5. LANTUS [Concomitant]
  6. HUMALOG [Concomitant]
  7. NEXIUM [Concomitant]

REACTIONS (2)
  - MALIGNANT NEOPLASM OF PLEURA [None]
  - RESPIRATORY FAILURE [None]
